FAERS Safety Report 4488968-9 (Version None)
Quarter: 2004Q4

REPORT INFORMATION
  Report Type: 
  Country: None (occurrence: None)
  Receive Date: 20041029
  Receipt Date: 20041023
  Transmission Date: 20050328
  Serious: Yes (Hospitalization)
  Sender: FDA-Public Use
  Company Number: 200418235US

PATIENT
  Sex: Male

DRUGS (10)
  1. LANTUS [Suspect]
     Indication: DIABETES MELLITUS NON-INSULIN-DEPENDENT
     Dosage: DOSE UNIT: UNITS
     Route: 058
     Dates: start: 20020101
  2. ASPIRIN [Concomitant]
  3. LIPITOR [Concomitant]
  4. CLINDAMYCIN HCL [Concomitant]
  5. PLAVIX [Concomitant]
  6. GLYBURIDE [Concomitant]
  7. LEVOFLOXACIN [Concomitant]
  8. PRINIVIL [Concomitant]
  9. METOPROLOL SUCCINATE [Concomitant]
  10. AVANDIA [Concomitant]

REACTIONS (5)
  - BLOOD GLUCOSE INCREASED [None]
  - DIZZINESS [None]
  - GLYCOSYLATED HAEMOGLOBIN INCREASED [None]
  - RESPIRATORY DISORDER [None]
  - STOMACH DISCOMFORT [None]
